FAERS Safety Report 25824732 (Version 1)
Quarter: 2025Q3

REPORT INFORMATION
  Report Type: Report from Study
  Country: BR (occurrence: BR)
  Receive Date: 20250919
  Receipt Date: 20250919
  Transmission Date: 20251021
  Serious: Yes (Other)
  Sender: AMGEN
  Company Number: BR-AMGEN-BRASL2025048281

PATIENT
  Age: 57 Year
  Sex: Male

DRUGS (2)
  1. VECTIBIX [Suspect]
     Active Substance: PANITUMUMAB
     Indication: Gastrointestinal cancer metastatic
     Route: 040
  2. RIVAROXABAN [Concomitant]
     Active Substance: RIVAROXABAN
     Dosage: 1 DOSAGE FORM, QD
     Route: 065

REACTIONS (13)
  - Thrombosis [Recovering/Resolving]
  - Mouth ulceration [Recovering/Resolving]
  - Ingrowing nail [Recovering/Resolving]
  - Limb injury [Recovering/Resolving]
  - Pustule [Recovering/Resolving]
  - Discouragement [Recovering/Resolving]
  - Somnolence [Recovering/Resolving]
  - Speech disorder [Unknown]
  - Diarrhoea [Recovering/Resolving]
  - Fatigue [Recovering/Resolving]
  - Acne [Recovering/Resolving]
  - Asthenia [Unknown]
  - Dyspnoea [Unknown]

NARRATIVE: CASE EVENT DATE: 20250101
